FAERS Safety Report 17991283 (Version 1)
Quarter: 2020Q3

REPORT INFORMATION
  Report Type: Spontaneous
  Country: US (occurrence: US)
  Receive Date: 20200707
  Receipt Date: 20200707
  Transmission Date: 20201103
  Serious: Yes (Death, Other)
  Sender: FDA-Public Use
  Company Number: US-NAPPMUNDI-USA-2020-0156489

PATIENT
  Age: 18 Year
  Sex: Male
  Weight: 1109.8 kg

DRUGS (30)
  1. NORCO [Suspect]
     Active Substance: ACETAMINOPHEN\HYDROCODONE BITARTRATE
     Dosage: 1 TABLET, BID
     Route: 048
     Dates: start: 20081102
  2. PHENERGAN WITH CODEINE             /00072201/ [Suspect]
     Active Substance: CHLOROFORM\CITRIC ACID MONOHYDRATE\CODEINE PHOSPHATE\IPECAC\PROMETHAZINE HYDROCHLORIDE\SODIUM CITRATE\SULFOGAIACOL
     Dosage: 1 TSP, Q4? 6H PRN
     Route: 048
     Dates: start: 20090111
  3. LEVAQUIN [Concomitant]
     Active Substance: LEVOFLOXACIN
     Indication: ACUTE SINUSITIS
     Dosage: 1 TABLET, DAILY
     Route: 048
     Dates: start: 20081117
  4. NORCO [Suspect]
     Active Substance: ACETAMINOPHEN\HYDROCODONE BITARTRATE
     Dosage: 1 TABLET, BID
     Route: 048
     Dates: start: 20090111
  5. XANAX [Suspect]
     Active Substance: ALPRAZOLAM
     Indication: ANXIETY
     Dosage: 2 MG, Q6H
     Route: 048
  6. OPANA [Suspect]
     Active Substance: OXYMORPHONE HYDROCHLORIDE
     Dosage: 40 MG, BID
     Route: 048
     Dates: start: 20090302
  7. PHENERGAN WITH CODEINE             /00072201/ [Suspect]
     Active Substance: CHLOROFORM\CITRIC ACID MONOHYDRATE\CODEINE PHOSPHATE\IPECAC\PROMETHAZINE HYDROCHLORIDE\SODIUM CITRATE\SULFOGAIACOL
     Dosage: 1 TSP, Q4? 6H PRN
     Route: 048
     Dates: start: 20090302
  8. NORCO [Suspect]
     Active Substance: ACETAMINOPHEN\HYDROCODONE BITARTRATE
     Indication: BACK PAIN
     Dosage: UNK, Q6? 8H
     Route: 048
  9. NORCO [Suspect]
     Active Substance: ACETAMINOPHEN\HYDROCODONE BITARTRATE
     Dosage: 1 TABLET, BID
     Route: 048
     Dates: start: 20081117
  10. NORCO [Suspect]
     Active Substance: ACETAMINOPHEN\HYDROCODONE BITARTRATE
     Dosage: 1 TABLET, BID
     Route: 048
     Dates: start: 20090325
  11. OPANA [Suspect]
     Active Substance: OXYMORPHONE HYDROCHLORIDE
     Dosage: 40 MG, BID
     Route: 048
     Dates: start: 20081102
  12. PHENERGAN WITH CODEINE             /00072201/ [Suspect]
     Active Substance: CHLOROFORM\CITRIC ACID MONOHYDRATE\CODEINE PHOSPHATE\IPECAC\PROMETHAZINE HYDROCHLORIDE\SODIUM CITRATE\SULFOGAIACOL
     Indication: COUGH
     Dosage: 1 TSP, Q4? 6H PRN
     Route: 048
     Dates: start: 20081117
  13. OXYCONTIN [Suspect]
     Active Substance: OXYCODONE HYDROCHLORIDE
     Indication: BACK PAIN
     Dosage: 80 MG, TID
     Route: 048
  14. OPANA [Suspect]
     Active Substance: OXYMORPHONE HYDROCHLORIDE
     Indication: BACK PAIN
     Dosage: 40 MG, BID
     Route: 048
  15. SOMA [Suspect]
     Active Substance: CARISOPRODOL
     Indication: BACK PAIN
     Dosage: 350 MG, TID
     Route: 048
     Dates: start: 20090111
  16. SOMA [Suspect]
     Active Substance: CARISOPRODOL
     Dosage: 350 MG, TID
     Route: 048
     Dates: start: 20090325
  17. VERAMYST [Concomitant]
     Active Substance: FLUTICASONE FUROATE
     Indication: ACUTE SINUSITIS
     Dosage: 2 SPRAY, UNK
     Route: 045
     Dates: start: 20081117
  18. HYDROCODONE BITARTRATE AND ACETAMINOPHEN [Suspect]
     Active Substance: ACETAMINOPHEN\HYDROCODONE BITARTRATE
     Indication: PRODUCT USED FOR UNKNOWN INDICATION
     Dosage: UNK
     Route: 048
  19. XANAX [Suspect]
     Active Substance: ALPRAZOLAM
     Dosage: 2 MG, TID
     Route: 048
     Dates: start: 20090302
  20. OPANA [Suspect]
     Active Substance: OXYMORPHONE HYDROCHLORIDE
     Dosage: 40 MG, BID
     Route: 048
     Dates: start: 20090111
  21. NORCO [Suspect]
     Active Substance: ACETAMINOPHEN\HYDROCODONE BITARTRATE
     Dosage: 1 TABLET, BID
     Route: 048
     Dates: start: 20081016
  22. XANAX [Suspect]
     Active Substance: ALPRAZOLAM
     Dosage: 1 TABLET, TID
     Route: 048
     Dates: start: 20081016
  23. OPANA [Suspect]
     Active Substance: OXYMORPHONE HYDROCHLORIDE
     Dosage: 40 MG, BID
     Route: 048
     Dates: start: 20081016
  24. OPANA [Suspect]
     Active Substance: OXYMORPHONE HYDROCHLORIDE
     Dosage: 40 MG, BID
     Route: 048
     Dates: start: 20090325
  25. SOMA [Suspect]
     Active Substance: CARISOPRODOL
     Dosage: 350 MG, TID
     Route: 048
     Dates: start: 20090302
  26. OXYCODONE/ ACETAMINOPHEN TABLETS [Suspect]
     Active Substance: ACETAMINOPHEN\OXYCODONE HYDROCHLORIDE
     Indication: PRODUCT USED FOR UNKNOWN INDICATION
     Dosage: UNK
     Route: 048
  27. NORCO [Suspect]
     Active Substance: ACETAMINOPHEN\HYDROCODONE BITARTRATE
     Dosage: 1 TABLET, BID
     Route: 048
     Dates: start: 20090302
  28. PERCOCET                           /00446701/ [Suspect]
     Active Substance: ACETAMINOPHEN\OXYCODONE HYDROCHLORIDE\OXYCODONE TEREPHTHALATE
     Indication: BREAKTHROUGH PAIN
     Dosage: UNK, Q6? 8H
     Route: 048
  29. XANAX [Suspect]
     Active Substance: ALPRAZOLAM
     Dosage: 2 MG, TID
     Route: 048
     Dates: start: 20081102
  30. OPANA [Suspect]
     Active Substance: OXYMORPHONE HYDROCHLORIDE
     Dosage: 40 MG, BID
     Route: 048
     Dates: start: 20081117

REACTIONS (11)
  - Bradycardia [Unknown]
  - Spinal pain [Unknown]
  - Pulmonary congestion [Unknown]
  - Pulmonary oedema [Unknown]
  - Dependence [Unknown]
  - Acute sinusitis [Unknown]
  - Cough [Unknown]
  - Drug abuse [Unknown]
  - Upper-airway cough syndrome [Unknown]
  - Poisoning [Fatal]
  - Obesity [Unknown]

NARRATIVE: CASE EVENT DATE: 20081016
